FAERS Safety Report 7299156-5 (Version None)
Quarter: 2011Q1

REPORT INFORMATION
  Report Type: 
  Country: None (occurrence: None)
  Receive Date: 20110208
  Receipt Date: 20110125
  Transmission Date: 20110831
  Serious: Yes (Other)
  Sender: FDA-Public Use
  Company Number: 026092

PATIENT
  Age: 71 Year
  Sex: Female

DRUGS (4)
  1. PREDNISOLONE [Concomitant]
  2. CIMZIA [Suspect]
     Dosage: (SUBCUTANEOUS)
     Route: 058
  3. ARCOXIA [Concomitant]
  4. LISINOPRIL [Concomitant]

REACTIONS (1)
  - PSORIASIS [None]
